FAERS Safety Report 16798313 (Version 1)
Quarter: 2019Q4

REPORT INFORMATION
  Report Type: Spontaneous
  Country: US (occurrence: US)
  Receive Date: 20190911
  Receipt Date: 20190911
  Transmission Date: 20200122
  Serious: No
  Sender: FDA-Public Use
  Company Number: None

PATIENT
  Age: 39 Year
  Sex: Female
  Weight: 77.4 kg

DRUGS (4)
  1. VOLTAREN GEL 1% - QID [Concomitant]
     Dates: start: 20190820
  2. MIRENA [Concomitant]
     Active Substance: LEVONORGESTREL
  3. NAPROXEN 500MG BID [Concomitant]
     Dates: start: 20190820
  4. CEFAZOLIN [Suspect]
     Active Substance: CEFAZOLIN
     Indication: STAPHYLOCOCCAL INFECTION
     Dosage: ?          OTHER FREQUENCY:Q8H;?
     Route: 042
     Dates: start: 20190820, end: 20190905

REACTIONS (2)
  - Therapy change [None]
  - Neutrophil count decreased [None]

NARRATIVE: CASE EVENT DATE: 20190905
